FAERS Safety Report 13664133 (Version 7)
Quarter: 2024Q4

REPORT INFORMATION
  Report Type: Report from Study
  Country: DE (occurrence: DE)
  Receive Date: 20170619
  Receipt Date: 20241211
  Transmission Date: 20250115
  Serious: Yes (Death)
  Sender: PFIZER
  Company Number: DE-PFIZER INC-HQ7480319JUN2000

PATIENT
  Age: 55 Year
  Sex: Female
  Weight: 71 kg

DRUGS (89)
  1. TAVOR (LORAZEPAM) [Suspect]
     Active Substance: LORAZEPAM
     Indication: Agitation
     Dosage: 0.5 MG, 2X/DAY
     Route: 042
     Dates: start: 19990520, end: 19990520
  2. TAVOR (LORAZEPAM) [Suspect]
     Active Substance: LORAZEPAM
     Indication: Restlessness
  3. VANCOMYCIN HYDROCHLORIDE [Suspect]
     Active Substance: VANCOMYCIN HYDROCHLORIDE
     Indication: Pneumonia
     Dosage: 500 MG, 2X/DAY
     Route: 042
     Dates: start: 19990521, end: 19990521
  4. FILGRASTIM [Suspect]
     Active Substance: FILGRASTIM
     Indication: Bone marrow transplant
     Dosage: 700 UG, 1X/DAY
     Route: 042
     Dates: start: 19990521, end: 19990521
  5. DOXYCYCLINE HYCLATE [Suspect]
     Active Substance: DOXYCYCLINE HYCLATE
     Indication: Pneumonia
     Dosage: 100 MG, 1X/DAY
     Route: 042
     Dates: start: 19990506, end: 1999
  6. METHOTREXATE SODIUM [Suspect]
     Active Substance: METHOTREXATE SODIUM
     Indication: Prophylaxis against transplant rejection
     Dosage: 19 MG, 1X/DAY
     Route: 042
     Dates: start: 19990429, end: 19990429
  7. METHOTREXATE SODIUM [Suspect]
     Active Substance: METHOTREXATE SODIUM
     Dosage: 19 MG, 1X/DAY
     Route: 042
     Dates: start: 19990501, end: 19990501
  8. MORPHINE SULFATE [Suspect]
     Active Substance: MORPHINE SULFATE
     Indication: Pain
     Dosage: 5 MG, EVERY HOUR
     Route: 042
     Dates: start: 19990501, end: 19990520
  9. PANTOPRAZOLE [Suspect]
     Active Substance: PANTOPRAZOLE
     Indication: Gastrointestinal disorder
     Dosage: 20 MG, DAILY
     Route: 042
     Dates: start: 19990521, end: 19990521
  10. ALPROSTADIL ALFADEX [Suspect]
     Active Substance: ALPROSTADIL ALFADEX
     Dosage: 500 UG, 1X/DAY
     Route: 042
     Dates: start: 19990503, end: 19990511
  11. ALPROSTADIL ALFADEX [Suspect]
     Active Substance: ALPROSTADIL ALFADEX
     Dosage: 500 UG, 1X/DAY
     Dates: start: 19990521, end: 19990521
  12. PROPOFOL [Suspect]
     Active Substance: PROPOFOL
     Dosage: 15 ML, EVERY HOUR
     Route: 042
     Dates: start: 19990521, end: 19990521
  13. OFLOXACIN HYDROCHLORIDE [Suspect]
     Active Substance: OFLOXACIN HYDROCHLORIDE
     Dosage: 400 MG, 1X/DAY
     Route: 042
     Dates: start: 19990428, end: 19990503
  14. METHYLPREDNISOLONE [Suspect]
     Active Substance: METHYLPREDNISOLONE
     Indication: Transplant rejection
     Dosage: 200 MG, DAILY
     Route: 042
     Dates: start: 19990425, end: 19990425
  15. METHYLPREDNISOLONE [Suspect]
     Active Substance: METHYLPREDNISOLONE
     Indication: Bone marrow transplant rejection
     Dosage: 200 MG, DAILY
     Route: 042
     Dates: start: 19990427, end: 19990428
  16. METHYLPREDNISOLONE [Suspect]
     Active Substance: METHYLPREDNISOLONE
     Dosage: 200 MG, DAILY
     Route: 042
     Dates: start: 19990507, end: 1999
  17. FUROSEMIDE [Suspect]
     Active Substance: FUROSEMIDE
     Indication: Oedema
     Dosage: 120 MG, DAILY
     Route: 042
     Dates: start: 19990425, end: 19990425
  18. FUROSEMIDE [Suspect]
     Active Substance: FUROSEMIDE
     Dosage: 120 MG, DAILY
     Route: 042
     Dates: start: 19990428, end: 19990502
  19. FUROSEMIDE [Suspect]
     Active Substance: FUROSEMIDE
     Dosage: 120 MG, 1X/DAY
     Route: 042
     Dates: start: 19990504, end: 19990504
  20. FUROSEMIDE [Suspect]
     Active Substance: FUROSEMIDE
     Dosage: 120 MG, DAILY
     Route: 042
     Dates: start: 19990506, end: 1999
  21. NOVALGIN (METAMIZOLE SODIUM) [Suspect]
     Active Substance: METAMIZOLE SODIUM
     Indication: Pain
     Dosage: 4 G, DAILY
     Route: 042
     Dates: start: 19990427, end: 19990516
  22. BROMAZEPAM [Suspect]
     Active Substance: BROMAZEPAM
     Indication: Agitation
     Dosage: 0.5 MG, DAILY
     Route: 050
     Dates: start: 19990423, end: 19990423
  23. BROMAZEPAM [Suspect]
     Active Substance: BROMAZEPAM
     Dosage: 0.5 MG, DAILY
     Route: 050
     Dates: start: 19990430, end: 19990430
  24. BROMAZEPAM [Suspect]
     Active Substance: BROMAZEPAM
     Dosage: 0.5 MG, DAILY
     Route: 050
     Dates: start: 19990503, end: 19990505
  25. NYSTATIN [Suspect]
     Active Substance: NYSTATIN
     Indication: Candida infection
     Dosage: 4 ML, DAILY
     Route: 048
     Dates: start: 19990423, end: 19990423
  26. NYSTATIN [Suspect]
     Active Substance: NYSTATIN
     Dosage: 4 ML, DAILY
     Route: 048
     Dates: start: 19990516, end: 19990516
  27. AMPHOTERICIN B [Suspect]
     Active Substance: AMPHOTERICIN B
     Indication: Pneumonia
     Dosage: 75 MG, DAILY
     Route: 042
     Dates: start: 19990430, end: 1999
  28. TARGOCID [Suspect]
     Active Substance: TEICOPLANIN
     Indication: Pneumonia
     Dosage: UNK
     Route: 042
     Dates: start: 19990503
  29. ACETYLCYSTEINE [Suspect]
     Active Substance: ACETYLCYSTEINE
     Dosage: 1 AMPULE, 2X/DAY
     Route: 042
     Dates: start: 19990502, end: 1999
  30. OMEPRAZOLE [Suspect]
     Active Substance: OMEPRAZOLE
     Dosage: 40 MG, DAILY
     Route: 042
     Dates: start: 19990501, end: 1999
  31. CEFTAZIDIME [Suspect]
     Active Substance: CEFTAZIDIME
     Indication: Pneumonia
     Dosage: 2 G, DAILY
     Route: 042
     Dates: start: 19990503, end: 19990517
  32. TOBRAMYCIN [Suspect]
     Active Substance: TOBRAMYCIN\TOBRAMYCIN SULFATE
     Indication: Pneumonia
     Dosage: 350 MG, DAILY
     Route: 042
     Dates: start: 19990511, end: 19990514
  33. TOBRAMYCIN [Suspect]
     Active Substance: TOBRAMYCIN\TOBRAMYCIN SULFATE
     Dosage: 350 MG, DAILY
     Route: 042
     Dates: start: 19990519, end: 1999
  34. ALBUMIN HUMAN [Suspect]
     Active Substance: ALBUMIN HUMAN
     Indication: Hypoalbuminaemia
     Dosage: 250 ML, SIX TIMES DAILY
     Route: 042
     Dates: start: 19990516, end: 19990516
  35. INSULIN NOS [Suspect]
     Active Substance: INSULIN NOS
     Indication: Hyperglycaemia
     Dosage: 14 UNITS, 1X/DAY
     Route: 042
     Dates: start: 19990517, end: 19990517
  36. ERYTHROMYCIN [Suspect]
     Active Substance: ERYTHROMYCIN
     Indication: Pneumonia
     Dosage: 500 MG, DAILY
     Route: 042
     Dates: start: 19990517, end: 1999
  37. CILASTATIN SODIUM\IMIPENEM [Suspect]
     Active Substance: CILASTATIN SODIUM\IMIPENEM
     Indication: Pneumonia
     Dosage: 500 MG, DAILY
     Route: 042
     Dates: start: 19990517, end: 1999
  38. TROMETHAMINE [Suspect]
     Active Substance: TROMETHAMINE
     Indication: Acidosis
     Dosage: 60 ML, DAILY
     Route: 042
     Dates: start: 19990518, end: 19990518
  39. ISOPROMETHAZINE [Suspect]
     Active Substance: ISOPROMETHAZINE
     Indication: Agitation
     Dosage: 25 MG, DAILY
     Route: 042
     Dates: start: 19990518, end: 19990520
  40. DOXYCYCLINE [Suspect]
     Active Substance: DOXYCYCLINE
     Indication: Pneumonia
     Dosage: 1 AMPULE, 2X/DAY
     Route: 042
     Dates: start: 19990519, end: 19990519
  41. PLASMA PROTEIN FRACTION (HUMAN) [Suspect]
     Active Substance: PLASMA PROTEIN FRACTION (HUMAN)
     Indication: Coagulopathy
     Dosage: 2X/DAY
     Route: 042
     Dates: start: 19990519, end: 19990519
  42. ACTRAPID [Suspect]
     Active Substance: INSULIN HUMAN
     Indication: Hyperglycaemia
     Dosage: 3 ML, DAILY
     Route: 042
     Dates: start: 19990519, end: 19990520
  43. DEXPANTHENOL [Suspect]
     Active Substance: DEXPANTHENOL
     Dosage: 3-4 TIMES DAILY
     Route: 055
     Dates: start: 19990519, end: 19990520
  44. GANCICLOVIR SODIUM [Suspect]
     Active Substance: GANCICLOVIR SODIUM
     Indication: Prophylaxis
     Dosage: 600 MG, 1X/DAY
     Route: 042
     Dates: start: 19990519, end: 1999
  45. SULTANOL [Suspect]
     Active Substance: ALBUTEROL SULFATE
     Dosage: 5-40 DROPS/DAY
     Route: 055
     Dates: start: 19990519, end: 1999
  46. THEOPHYLLINE ANHYDROUS [Suspect]
     Active Substance: THEOPHYLLINE ANHYDROUS
     Indication: Respiratory failure
     Dosage: 200 MG, 2X/DAY
     Route: 042
     Dates: start: 19990520, end: 19990520
  47. THEOPHYLLINE SODIUM GLYCINATE [Suspect]
     Active Substance: THEOPHYLLINE SODIUM GLYCINATE
     Indication: Respiratory failure
     Dosage: 4 ML, PER HOUR
     Route: 042
     Dates: start: 19990520, end: 19990520
  48. NOREPINEPHRINE HYDROCHLORIDE, (+/-)- [Suspect]
     Active Substance: NOREPINEPHRINE HYDROCHLORIDE, (+/-)-
     Dosage: 50 ML, 1X/DAY
     Route: 042
     Dates: start: 19990521, end: 19990521
  49. ATROVENT [Suspect]
     Active Substance: IPRATROPIUM BROMIDE
     Indication: Respiratory failure
     Dosage: 2 PUFFS, DAILY
     Route: 055
     Dates: start: 19990521, end: 19990521
  50. SUFENTA [Suspect]
     Active Substance: SUFENTANIL CITRATE
     Dosage: 3 ML, EVERY HOUR
     Route: 042
     Dates: start: 19990521, end: 19990521
  51. NORFENEFRINE HYDROCHLORIDE [Suspect]
     Active Substance: NORFENEFRINE HYDROCHLORIDE
     Dosage: 50 ML, 1X/DAY
     Route: 042
     Dates: start: 19990521, end: 19990521
  52. ACETYLCYSTEINE [Suspect]
     Active Substance: ACETYLCYSTEINE
     Dosage: UNK
     Route: 042
     Dates: start: 19990502, end: 1999
  53. ISOPROMETHAZINE HYDROCHLORIDE [Suspect]
     Active Substance: ISOPROMETHAZINE HYDROCHLORIDE
     Dosage: 25 MG, 1X/DAY
     Dates: start: 19990518, end: 19990520
  54. ZOVIRAX [Concomitant]
     Active Substance: ACYCLOVIR
     Route: 042
  55. AMINO ACIDS, SOURCE UNSPECIFIED [Concomitant]
     Active Substance: AMINO ACIDS, SOURCE UNSPECIFIED
     Route: 042
  56. AMINOMIX /07405401/ [Concomitant]
     Route: 042
  57. AMPHO-MORONAL [Concomitant]
     Active Substance: AMPHOTERICIN B
     Dosage: UNK
     Route: 042
     Dates: start: 19990520, end: 19990520
  58. EQUINE THYMOCYTE IMMUNE GLOBULIN [Concomitant]
     Active Substance: EQUINE THYMOCYTE IMMUNE GLOBULIN
     Route: 042
  59. MAGNESIUM ASPARTATE\POTASSIUM ASPARTATE [Concomitant]
     Active Substance: MAGNESIUM ASPARTATE\POTASSIUM ASPARTATE
     Route: 042
  60. MYLERAN [Concomitant]
     Active Substance: BUSULFAN
     Route: 048
  61. CALCIUM GLUCONATE [Concomitant]
     Active Substance: CALCIUM GLUCONATE
     Route: 042
  62. CYCLOSPORINE [Concomitant]
     Active Substance: CYCLOSPORINE
     Route: 042
  63. CLEMASTINE FUMARATE [Concomitant]
     Active Substance: CLEMASTINE FUMARATE
     Route: 042
  64. CYCLOPHOSPHAMIDE [Concomitant]
     Active Substance: CYCLOPHOSPHAMIDE
     Route: 042
  65. DEXAMETHASON ACIS [DEXAMETHASONE SODIUM PHOSPHATE] [Concomitant]
     Route: 042
  66. VITINTRA /01022301/ [Concomitant]
     Route: 042
  67. ETOPOSIDE [Concomitant]
     Active Substance: ETOPOSIDE
     Route: 042
  68. FAMOTIDINE [Concomitant]
     Active Substance: FAMOTIDINE
     Route: 042
  69. DEXTROSE [Concomitant]
     Active Substance: DEXTROSE MONOHYDRATE
     Route: 042
  70. INTRALIPID [Concomitant]
     Active Substance: EGG PHOSPHOLIPIDS\GLYCERIN\SOYBEAN OIL
     Route: 042
  71. HEPARIN [Concomitant]
     Active Substance: HEPARIN SODIUM
     Route: 058
  72. OCTAGAM IMMUNE GLOBULIN (HUMAN) [Concomitant]
     Active Substance: HUMAN IMMUNOGLOBULIN G
     Route: 042
  73. SEMPERA [Concomitant]
     Active Substance: ITRACONAZOLE
     Route: 048
  74. LENOGRASTIM [Concomitant]
     Active Substance: LENOGRASTIM
     Route: 042
  75. MAGNESIUM [Concomitant]
     Active Substance: MAGNESIUM
     Route: 042
  76. MESNA [Concomitant]
     Active Substance: MESNA
     Route: 042
  77. METRONIDAZOLE [Concomitant]
     Active Substance: METRONIDAZOLE
     Route: 030
  78. METRONIDAZOLE [Concomitant]
     Active Substance: METRONIDAZOLE
     Dosage: UNK
     Route: 048
  79. OFLOXACIN [Concomitant]
     Active Substance: OFLOXACIN
     Route: 048
  80. ZOFRAN [Concomitant]
     Active Substance: ONDANSETRON HYDROCHLORIDE
     Dosage: UNK
     Route: 042
  81. ZOFRAN [Concomitant]
     Active Substance: ONDANSETRON HYDROCHLORIDE
     Dosage: UNK
     Route: 048
  82. PENTAMIDINE ISETHIONATE [Concomitant]
     Active Substance: PENTAMIDINE ISETHIONATE
     Route: 065
  83. PHENYTOIN [Concomitant]
     Active Substance: PHENYTOIN
     Route: 048
  84. KONAKION [Concomitant]
     Active Substance: PHYTONADIONE
     Route: 042
  85. POTASSIUM CHLORIDE [Concomitant]
     Active Substance: POTASSIUM CHLORIDE
     Route: 042
  86. SODIUM BICARBONATE [Concomitant]
     Active Substance: SODIUM BICARBONATE
     Route: 042
  87. SODIUM CHLORIDE [Concomitant]
     Active Substance: SODIUM CHLORIDE
     Route: 042
  88. SOLUVIT NOVUM /07504101/ [Concomitant]
     Route: 042
  89. HEPAR H [Concomitant]

REACTIONS (2)
  - Toxic epidermal necrolysis [Fatal]
  - Stevens-Johnson syndrome [Fatal]

NARRATIVE: CASE EVENT DATE: 19990521
